FAERS Safety Report 23947455 (Version 1)
Quarter: 2024Q2

REPORT INFORMATION
  Report Type: Spontaneous
  Country: JP (occurrence: JP)
  Receive Date: 20240606
  Receipt Date: 20240606
  Transmission Date: 20240716
  Serious: Yes (Death)
  Sender: FDA-Public Use
  Company Number: JP-PFIZER INC-PV202400073128

PATIENT
  Age: 59 Year
  Sex: Female

DRUGS (7)
  1. HYDROCORTISONE [Suspect]
     Active Substance: HYDROCORTISONE
     Indication: Graft versus host disease
     Dosage: 100 MG, DAILY
  2. HYDROCORTISONE [Suspect]
     Active Substance: HYDROCORTISONE
     Dosage: 50 MG, DAILY
  3. MEROPENEM [Concomitant]
     Active Substance: MEROPENEM
     Indication: Febrile neutropenia
     Route: 048
  4. TEICOPLANIN [Concomitant]
     Active Substance: TEICOPLANIN
     Indication: Febrile neutropenia
     Route: 048
  5. POSACONAZOLE [Concomitant]
     Active Substance: POSACONAZOLE
     Indication: Febrile neutropenia
     Route: 048
  6. TACROLIMUS [Concomitant]
     Active Substance: TACROLIMUS
  7. PREDNISOLONE [Concomitant]
     Active Substance: PREDNISOLONE

REACTIONS (2)
  - Fusarium infection [Fatal]
  - Off label use [Unknown]
